FAERS Safety Report 6712612-0 (Version None)
Quarter: 2010Q2

REPORT INFORMATION
  Report Type: 
  Country: None (occurrence: None)
  Receive Date: 20100505
  Receipt Date: 20100505
  Transmission Date: 20101027
  Serious: No
  Sender: FDA-Public Use
  Company Number: None

PATIENT
  Sex: Female
  Weight: 66.6788 kg

DRUGS (3)
  1. MIRTAZAPINE [Suspect]
     Indication: DEPRESSION
     Dosage: 30MG AT EVENING ORAL
     Route: 048
     Dates: start: 20100320, end: 20100329
  2. MIRTAZAPINE [Suspect]
     Indication: SLEEP DISORDER
     Dosage: 30MG AT EVENING ORAL
     Route: 048
     Dates: start: 20100320, end: 20100329
  3. VERAPAMIL [Suspect]
     Indication: MIGRAINE
     Dosage: 40 MG HALF TABLET 2X'S A DAY ORAL
     Route: 048

REACTIONS (3)
  - DIARRHOEA [None]
  - NAUSEA [None]
  - RETCHING [None]
